FAERS Safety Report 19268234 (Version 1)
Quarter: 2021Q2

REPORT INFORMATION
  Report Type: Spontaneous
  Country: US (occurrence: US)
  Receive Date: 20210517
  Receipt Date: 20210517
  Transmission Date: 20210717
  Serious: No
  Sender: FDA-Public Use
  Company Number: US-HORIZON THERAPEUTICS-HZN-2020-000001

PATIENT
  Sex: Female

DRUGS (1)
  1. TEPROTUMUMAB?TRBW [Suspect]
     Active Substance: TEPROTUMUMAB-TRBW
     Indication: ENDOCRINE OPHTHALMOPATHY
     Dosage: 20 MG/KG ( INFUSIONS COMPLETE)
     Route: 042

REACTIONS (1)
  - Myalgia [Not Recovered/Not Resolved]
